FAERS Safety Report 18506382 (Version 1)
Quarter: 2020Q4

REPORT INFORMATION
  Report Type: Spontaneous
  Country: US (occurrence: US)
  Receive Date: 20201115
  Receipt Date: 20201115
  Transmission Date: 20210114
  Serious: No
  Sender: FDA-Public Use
  Company Number: None

PATIENT
  Sex: Male

DRUGS (2)
  1. PROPOFOL. [Suspect]
     Active Substance: PROPOFOL
  2. ALARIS PUMP [Suspect]
     Active Substance: DEVICE

REACTIONS (3)
  - Incorrect drug administration rate [None]
  - Device infusion issue [None]
  - Blood pressure decreased [None]

NARRATIVE: CASE EVENT DATE: 20200704
